FAERS Safety Report 4519972-X (Version None)
Quarter: 2004Q4

REPORT INFORMATION
  Report Type: 
  Country: None (occurrence: None)
  Receive Date: 20041201
  Receipt Date: 20041201
  Transmission Date: 20050328
  Serious: Yes (Life-Threatening, Hospitalization)
  Sender: FDA-Public Use
  Company Number: None

PATIENT
  Age: 88 Year
  Sex: Male
  Weight: 64.5 kg

DRUGS (2)
  1. FUROSEMIDE [Suspect]
  2. METOPROLOL [Concomitant]

REACTIONS (3)
  - HYPOVOLAEMIA [None]
  - PALPITATIONS [None]
  - SYNCOPE [None]
